FAERS Safety Report 8342200-4 (Version None)
Quarter: 2012Q2

REPORT INFORMATION
  Report Type: 
  Country: None (occurrence: None)
  Receive Date: 20120507
  Receipt Date: 20120427
  Transmission Date: 20120825
  Serious: Yes (Death, Hospitalization)
  Sender: FDA-Public Use
  Company Number: US-AMGEN-USASP2012005201

PATIENT
  Age: 57 Year
  Sex: Male
  Weight: 125 kg

DRUGS (10)
  1. AVANDIA [Concomitant]
     Dosage: 8 MG, QD
     Route: 048
  2. DURAGESIC-100 [Concomitant]
     Dosage: UNK
     Dates: end: 20060414
  3. SKELAXIN [Concomitant]
     Dosage: 800 MG, BID
     Route: 048
  4. LASIX [Concomitant]
     Dosage: 80 MG, QD
     Route: 048
  5. NASONEX [Concomitant]
     Dosage: 50 MUG, UNK
  6. PROCRIT [Suspect]
     Indication: ANAEMIA
     Dosage: UNK
     Dates: start: 20060422
  7. BENAZEPRIL HYDROCHLORIDE [Concomitant]
     Indication: HYPERTENSION
     Dosage: 20 MG, BID
     Route: 048
  8. ZOCOR [Concomitant]
     Dosage: 40 MG, QD
     Route: 048
  9. NORVASC [Concomitant]
     Indication: HYPERTENSION
     Dosage: 10 MG, QD
     Route: 048
  10. TRICOR [Concomitant]
     Dosage: 160 MG, QD

REACTIONS (8)
  - LUMBAR VERTEBRAL FRACTURE [None]
  - RIB FRACTURE [None]
  - PNEUMONIA [None]
  - FALL [None]
  - DEEP VEIN THROMBOSIS [None]
  - CIRCULATORY COLLAPSE [None]
  - PULMONARY EMBOLISM [None]
  - BLOOD HOMOCYSTEINE INCREASED [None]
